FAERS Safety Report 15930969 (Version 1)
Quarter: 2019Q1

REPORT INFORMATION
  Report Type: Spontaneous
  Country: US (occurrence: US)
  Receive Date: 20190207
  Receipt Date: 20190207
  Transmission Date: 20190417
  Serious: Yes (Other)
  Sender: FDA-Public Use
  Company Number: US-DRREDDYS-USA/USA/19/0107572

PATIENT
  Sex: Female
  Weight: 72.72 kg

DRUGS (5)
  1. LEVOTHYROXINE 100 MCG [Concomitant]
     Active Substance: LEVOTHYROXINE
     Indication: HYPOTHYROIDISM
  2. ZOLEDRONIC ACID [Suspect]
     Active Substance: ZOLEDRONIC ACID
     Indication: OSTEOPOROSIS
     Dosage: ZOLEDRONIC ACID 4MG/5ML
  3. ATORVASTATIN 40 MG [Concomitant]
     Active Substance: ATORVASTATIN
     Indication: BLOOD CHOLESTEROL INCREASED
  4. NORVASC [Concomitant]
     Active Substance: AMLODIPINE BESYLATE
     Indication: HYPERTENSION
  5. VITAMIN D 50,000 UNITS [Concomitant]
     Indication: VITAMIN SUPPLEMENTATION
     Dosage: 50,000 UNITS ONCE EVERY OTHER WEEK

REACTIONS (1)
  - Atypical femur fracture [Unknown]
